FAERS Safety Report 19230900 (Version 1)
Quarter: 2021Q2

REPORT INFORMATION
  Report Type: Report from Study
  Country: IT (occurrence: IT)
  Receive Date: 20210507
  Receipt Date: 20210507
  Transmission Date: 20210717
  Serious: Yes (Death, Hospitalization, Other)
  Sender: FDA-Public Use
  Company Number: IT-TAKEDA-2021TUS029365

PATIENT
  Sex: Female

DRUGS (1)
  1. HUMAN IMMUNOGLOBULIN; HYALURONIDASE [Suspect]
     Active Substance: HUMAN IMMUNOGLOBULIN G\HYALURONIDASE RECOMBINANT HUMAN
     Indication: PRIMARY IMMUNODEFICIENCY SYNDROME
     Dosage: 30 GRAM, 1/WEEK
     Route: 058
     Dates: start: 20210402, end: 20210430

REACTIONS (4)
  - Death [Fatal]
  - Dehydration [Unknown]
  - Pneumonia [Unknown]
  - Ischaemia [Unknown]

NARRATIVE: CASE EVENT DATE: 20210503
